FAERS Safety Report 9693534 (Version 1)
Quarter: 2013Q4

REPORT INFORMATION
  Report Type: Spontaneous
  Country: US (occurrence: US)
  Receive Date: 20131118
  Receipt Date: 20131118
  Transmission Date: 20140711
  Serious: Yes (Hospitalization)
  Sender: FDA-Public Use
  Company Number: US-GLAXOSMITHKLINE-A1049918A

PATIENT
  Age: 89 Year
  Sex: Male

DRUGS (1)
  1. REQUIP XL [Suspect]
     Indication: PRODUCT USED FOR UNKNOWN INDICATION
     Dosage: 12MG UNKNOWN
     Route: 065
     Dates: start: 20110811

REACTIONS (1)
  - Implant site infection [Unknown]
